FAERS Safety Report 11779118 (Version 2)
Quarter: 2016Q1

REPORT INFORMATION
  Report Type: Report from Study
  Country: HK (occurrence: HK)
  Receive Date: 20151125
  Receipt Date: 20160114
  Transmission Date: 20160525
  Serious: Yes (Hospitalization)
  Sender: FDA-Public Use
  Company Number: HK-EXELIXIS-XL18415005589

PATIENT
  Age: 63 Year
  Sex: Male
  Weight: 48.4 kg

DRUGS (14)
  1. CHLORPROMAZINE HCL [Concomitant]
     Active Substance: CHLORPROMAZINE HYDROCHLORIDE
  2. SPIRONOLACTONE. [Concomitant]
     Active Substance: SPIRONOLACTONE
  3. ATENOLOL. [Concomitant]
     Active Substance: ATENOLOL
  4. CLOXACILLIN SODIUM [Concomitant]
     Active Substance: CLOXACILLIN SODIUM
  5. XL184 [Suspect]
     Active Substance: CABOZANTINIB
     Indication: HEPATOCELLULAR CARCINOMA
     Dosage: 60 MG, QD
     Route: 048
     Dates: start: 20150504, end: 2015
  6. MORPHINE SULPHATE [Concomitant]
     Active Substance: MORPHINE SULFATE
  7. GLICLAZIDE [Concomitant]
     Active Substance: GLICLAZIDE
  8. POTASSIUM PERMANGANATE [Concomitant]
     Active Substance: POTASSIUM PERMANGANATE
  9. FLUOCINOLONE ACETONIDE. [Concomitant]
     Active Substance: FLUOCINOLONE ACETONIDE
  10. DOTHIEPIN [Concomitant]
     Active Substance: DOTHIEPIN\DOTHIEPIN HYDROCHLORIDE
  11. ZOPICLONE [Concomitant]
     Active Substance: ZOPICLONE
  12. XL184 [Suspect]
     Active Substance: CABOZANTINIB
     Dosage: 40 MG, QD
     Route: 048
     Dates: start: 2015, end: 20150723
  13. TRAVOCORT [Concomitant]
  14. DEANXIT [Concomitant]
     Active Substance: FLUPENTIXOL DIHYDROCHLORIDE\MELITRACEN HYDROCHLORIDE

REACTIONS (2)
  - Gastritis erosive [Recovered/Resolved]
  - Epistaxis [Recovered/Resolved]

NARRATIVE: CASE EVENT DATE: 20150727
